FAERS Safety Report 7922566-7 (Version None)
Quarter: 2011Q4

REPORT INFORMATION
  Report Type: 
  Country: None (occurrence: None)
  Receive Date: 20111117
  Receipt Date: 20110124
  Transmission Date: 20120403
  Serious: No
  Sender: FDA-Public Use
  Company Number: US-AMGEN-USASP2011004180

PATIENT
  Age: 35 Year
  Sex: Female
  Weight: 118.82 kg

DRUGS (3)
  1. ENBREL [Suspect]
     Indication: PRODUCT USED FOR UNKNOWN INDICATION
     Dosage: 50 MG, 2 TIMES/WK
     Route: 058
  2. XANAX [Concomitant]
     Dosage: 1 MG, UNK
  3. SEASONALE [Concomitant]

REACTIONS (1)
  - INJECTION SITE ERYTHEMA [None]
